FAERS Safety Report 10169192 (Version 1)
Quarter: 2014Q2

REPORT INFORMATION
  Report Type: Report from Study
  Country: US (occurrence: US)
  Receive Date: 20140513
  Receipt Date: 20140513
  Transmission Date: 20141212
  Serious: Yes (Other)
  Sender: FDA-Public Use
  Company Number: US-ABBVIE-14P-163-1234650-00

PATIENT
  Sex: Female

DRUGS (9)
  1. VICODIN [Suspect]
     Indication: PAIN
     Dates: start: 201208
  2. HUMIRA [Suspect]
     Indication: RHEUMATOID ARTHRITIS
     Dates: start: 2005, end: 2005
  3. HUMIRA [Suspect]
     Dates: start: 2005, end: 2007
  4. HUMIRA [Suspect]
     Dates: start: 2007
  5. HUMIRA [Suspect]
     Dosage: OFF FOR 4-6 WEEKS
     Dates: end: 201208
  6. HUMIRA [Suspect]
  7. HUMIRA [Suspect]
     Dosage: TOOK IT TWO WEEKS AGO
  8. METHOTREXATE [Suspect]
     Indication: PRODUCT USED FOR UNKNOWN INDICATION
     Dates: end: 2005
  9. LOSARTAN [Concomitant]
     Indication: HYPERTENSION

REACTIONS (11)
  - Arthralgia [Not Recovered/Not Resolved]
  - Fatigue [Not Recovered/Not Resolved]
  - Drug dose omission [Not Recovered/Not Resolved]
  - Rheumatoid arthritis [Not Recovered/Not Resolved]
  - Feeling abnormal [Not Recovered/Not Resolved]
  - Pain [Not Recovered/Not Resolved]
  - Drug dose omission [Not Recovered/Not Resolved]
  - Rheumatoid arthritis [Recovering/Resolving]
  - Feeling hot [Recovering/Resolving]
  - Diet noncompliance [Recovering/Resolving]
  - Injection site pain [Not Recovered/Not Resolved]
